FAERS Safety Report 15293881 (Version 2)
Quarter: 2018Q3

REPORT INFORMATION
  Report Type: Spontaneous
  Country: US (occurrence: US)
  Receive Date: 20180820
  Receipt Date: 20180920
  Transmission Date: 20181010
  Serious: Yes (Hospitalization)
  Sender: FDA-Public Use
  Company Number: US-SAMSUNG BIOEPIS-SB-2018-10534

PATIENT
  Age: 29 Year
  Sex: Female

DRUGS (3)
  1. PREDNISONE. [Concomitant]
     Active Substance: PREDNISONE
     Indication: CROHN^S DISEASE
     Dosage: UNKNOWN
     Route: 048
  2. AZATHIOPRINE. [Concomitant]
     Active Substance: AZATHIOPRINE
     Indication: CROHN^S DISEASE
     Dosage: UNKNOWN
     Route: 065
  3. INFLIXIMAB [Suspect]
     Active Substance: INFLIXIMAB
     Indication: CROHN^S DISEASE
     Dosage: UNKNOWN
     Route: 065

REACTIONS (5)
  - Retroperitoneal abscess [Recovering/Resolving]
  - Maternal exposure during pregnancy [Unknown]
  - Sepsis [Recovering/Resolving]
  - Acute respiratory failure [Recovering/Resolving]
  - Crohn^s disease [Unknown]
